FAERS Safety Report 20684364 (Version 3)
Quarter: 2022Q4

REPORT INFORMATION
  Report Type: Report from Study
  Country: CA (occurrence: CA)
  Receive Date: 20220407
  Receipt Date: 20221124
  Transmission Date: 20230113
  Serious: Yes (Death, Hospitalization, Other)
  Sender: FDA-Public Use
  Company Number: CA-ABBVIE-22K-028-4350123-00

PATIENT
  Sex: Female

DRUGS (2)
  1. VENCLEXTA [Suspect]
     Active Substance: VENETOCLAX
     Indication: Acute myeloid leukaemia
     Route: 048
     Dates: start: 20220317, end: 20220330
  2. CYSTADANE [Concomitant]
     Active Substance: BETAINE
     Indication: Product used for unknown indication
     Route: 058
     Dates: start: 20220313, end: 20220322

REACTIONS (4)
  - Infection [Fatal]
  - Pancytopenia [Unknown]
  - Sepsis [Fatal]
  - Abdominal pain [Fatal]
